FAERS Safety Report 7513707-4 (Version None)
Quarter: 2011Q2

REPORT INFORMATION
  Report Type: 
  Country: None (occurrence: None)
  Receive Date: 20110531
  Receipt Date: 20110526
  Transmission Date: 20111010
  Serious: Yes (Hospitalization)
  Sender: FDA-Public Use
  Company Number: DE-ABBOTT-11P-062-0728787-00

PATIENT
  Age: 42 Year
  Sex: Female

DRUGS (2)
  1. HUMIRA [Suspect]
     Indication: CROHN'S DISEASE
     Dosage: WEEK 0
     Route: 058
     Dates: start: 20100820
  2. HUMIRA [Suspect]
     Dosage: 40 MG WEEK 2 AND EOW
     Route: 050

REACTIONS (1)
  - RENAL FAILURE ACUTE [None]
